FAERS Safety Report 6275058-8 (Version None)
Quarter: 2009Q3

REPORT INFORMATION
  Report Type: 
  Country: None (occurrence: None)
  Receive Date: 20090721
  Receipt Date: 20090709
  Transmission Date: 20100115
  Serious: Yes (Hospitalization)
  Sender: FDA-Public Use
  Company Number: IT-ROCHE-642699

PATIENT
  Sex: Female

DRUGS (3)
  1. PEGASYS [Suspect]
     Dosage: FREQUENCY REPORTED AS WEEKLY. DOSE REPORTED AS 180 MCG.
     Route: 058
     Dates: start: 20090424, end: 20090605
  2. COPEGUS [Suspect]
     Dosage: FREQUENCY REPORTED AS OD
     Route: 048
     Dates: start: 20090424, end: 20090605
  3. PENTACOL [Concomitant]
     Dosage: FREQUENCY: UNKNOWN
     Route: 048

REACTIONS (3)
  - GENITAL ABSCESS [None]
  - NEUTROPENIA [None]
  - WHITE BLOOD CELL COUNT DECREASED [None]
